FAERS Safety Report 11604508 (Version 2)
Quarter: 2015Q4

REPORT INFORMATION
  Report Type: Spontaneous
  Country: FR (occurrence: FR)
  Receive Date: 20151007
  Receipt Date: 20151019
  Transmission Date: 20160304
  Serious: Yes (Life-Threatening, Other)
  Sender: FDA-Public Use
  Company Number: FR-PFIZER INC-2015318262

PATIENT
  Age: 83 Year
  Sex: Female

DRUGS (18)
  1. ENDOXAN /00021101/ [Suspect]
     Active Substance: CYCLOPHOSPHAMIDE
     Indication: DIFFUSE LARGE B-CELL LYMPHOMA
     Dosage: 400 MG/M2, CYCLIC ON EACH DAY2 OF THE CYCLE EVERY 3 WEEKS, TOTAL OF 6 CYCLES
     Dates: start: 20140808, end: 20141120
  2. MABTHERA [Suspect]
     Active Substance: RITUXIMAB
     Indication: DIFFUSE LARGE B-CELL LYMPHOMA
     Dosage: 375 MG/M2, CYCLIC ON EACH DAY1 OF THE CYCLE EVERY 3 WEEKS, TOTAL OF 6 CYCLES
     Dates: start: 20140808, end: 20141120
  3. TANAKAN [Concomitant]
     Active Substance: GINKGO
     Dosage: 1 DF, 1X/DAY IN THE MORNING
  4. NATISPRAY [Concomitant]
     Active Substance: NITROGLYCERIN
     Indication: CHEST PAIN
     Dosage: 0.15 MG, AS NEEDED
  5. DICLOFENAC SODIUM. [Concomitant]
     Active Substance: DICLOFENAC SODIUM
  6. CHONDROSULF [Concomitant]
     Active Substance: CHONDROITIN SULFATE (CHICKEN)
     Dosage: 1 DF, 3X/DAY IN THE MORNING, MIDDAY AND EVENING
  7. CALCIUM VITAMIN D [Concomitant]
     Active Substance: CALCIUM\VITAMIN D
     Dosage: 1 DF, 1X/DAY IN THE EVENING
  8. IBUPROFEN. [Concomitant]
     Active Substance: IBUPROFEN
  9. MAGNESIUM VITAMIN B6 [Concomitant]
     Dosage: 2 DF, 2X/DAY, 2 DF IN THE MORNING AND 2 DF ON MIDDAY
  10. DOXORUBICIN HCL [Suspect]
     Active Substance: DOXORUBICIN HYDROCHLORIDE
     Indication: DIFFUSE LARGE B-CELL LYMPHOMA
     Dosage: 25 MG/M2, CYCLIC ON DAY2 OF THE CYCLE EVERY 3 WEEKS, TOTAL OF 6 CYCLES
     Dates: start: 20140808, end: 20141120
  11. LEVOTHYROX [Concomitant]
     Active Substance: LEVOTHYROXINE
     Indication: HYPOTHYROIDISM
     Dosage: 75 ?G, 1X/DAY IN THE MORNING
  12. ESOMEPRAZOLE MAGNESIUM. [Concomitant]
     Active Substance: ESOMEPRAZOLE MAGNESIUM
     Dosage: 40 MG, 1X/DAY IN THE EVENING
  13. GAVISCON /01405501/ [Concomitant]
     Active Substance: SODIUM ALGINATE\SODIUM BICARBONATE
  14. BICIRKAN [Concomitant]
     Active Substance: ASCORBIC ACID\HESPERIDIN METHYLCHALCONE
     Dosage: 1 DF(400MG/200MG/80MG), 2X/DAY (IN THE MORNING AND EVENING)
  15. VINCRISTINE SULFATE. [Concomitant]
     Active Substance: VINCRISTINE SULFATE
     Indication: DIFFUSE LARGE B-CELL LYMPHOMA
     Dosage: 1 MG, CYCLIC EACH 3 WEEKS, ON DAY 2 OF EACH CYCLE, TOTAL OF 6 CYCLES
     Dates: start: 20140808, end: 20141120
  16. VESICARE [Concomitant]
     Active Substance: SOLIFENACIN SUCCINATE
     Dosage: 10 MG, 1X/DAY IN THE MORNING
  17. POWDER OF OPIUM/CAFFEINE/PARACETAMOL [Concomitant]
     Indication: PAIN
     Dosage: 2-3 DF DAILY
  18. ATARAX [Concomitant]
     Active Substance: HYDROXYZINE\HYDROXYZINE HYDROCHLORIDE
     Dosage: 25 MG, 1X/DAY IN THE EVENING

REACTIONS (3)
  - Ejection fraction decreased [Not Recovered/Not Resolved]
  - Pulmonary oedema [Not Recovered/Not Resolved]
  - Cardiac failure [Not Recovered/Not Resolved]

NARRATIVE: CASE EVENT DATE: 20150713
